FAERS Safety Report 25238654 (Version 1)
Quarter: 2025Q2

REPORT INFORMATION
  Report Type: Spontaneous
  Country: CN (occurrence: CN)
  Receive Date: 20250425
  Receipt Date: 20250425
  Transmission Date: 20250716
  Serious: Yes (Life-Threatening, Hospitalization)
  Sender: MACLEODS
  Company Number: CN-MACLEODS PHARMA-MAC2025052750

PATIENT

DRUGS (5)
  1. QUETIAPINE [Suspect]
     Active Substance: QUETIAPINE
     Indication: Product used for unknown indication
     Dosage: ONE TABLET, ONCE DAILY
     Route: 065
     Dates: start: 20230329
  2. QUETIAPINE [Suspect]
     Active Substance: QUETIAPINE
     Route: 048
     Dates: start: 20230329
  3. VORTIOXETINE HYDROBROMIDE [Concomitant]
     Active Substance: VORTIOXETINE HYDROBROMIDE
     Indication: Product used for unknown indication
     Route: 065
  4. VENLAFAXINE HCL [Concomitant]
     Active Substance: VENLAFAXINE HYDROCHLORIDE
     Indication: Product used for unknown indication
     Dosage: SUSTAINED-RELEASE CAPSULES, 75 MG, TWO TABLETS, ONCE DAILY
     Route: 065
  5. ESTAZOLAM [Concomitant]
     Active Substance: ESTAZOLAM
     Indication: Product used for unknown indication
     Dosage: ONE TABLET, BEFORE BEDTIME
     Route: 065

REACTIONS (10)
  - Long QT syndrome [Recovered/Resolved]
  - Neuropathy peripheral [Recovered/Resolved]
  - Tubulointerstitial nephritis [Recovered/Resolved]
  - Renal tubular necrosis [Recovered/Resolved]
  - Renal tubular disorder [Recovered/Resolved]
  - Toxicity to various agents [Recovered/Resolved]
  - Rhabdomyolysis [Recovered/Resolved]
  - Tachycardia [Recovered/Resolved]
  - Coma [Recovered/Resolved]
  - Intentional overdose [Recovered/Resolved]

NARRATIVE: CASE EVENT DATE: 20230329
